FAERS Safety Report 9056628 (Version 3)
Quarter: 2013Q1

REPORT INFORMATION
  Report Type: Spontaneous
  Country: US (occurrence: US)
  Receive Date: 20130204
  Receipt Date: 20130301
  Transmission Date: 20140127
  Serious: Yes (Other)
  Sender: FDA-Public Use
  Company Number: US-PFIZER INC-2013042407

PATIENT
  Age: 59 Year
  Sex: Female
  Weight: 73.02 kg

DRUGS (8)
  1. SOLU-MEDROL [Suspect]
     Indication: BACK DISORDER
     Dosage: UNK, SINGLE (ONCE)
     Route: 030
     Dates: start: 20130129, end: 20130129
  2. SOLU-MEDROL [Suspect]
     Indication: MIGRAINE
  3. SOLU-MEDROL [Suspect]
     Indication: ASTHMA
  4. SOLU-MEDROL [Suspect]
     Indication: HEADACHE
  5. TORADOL [Suspect]
     Indication: BACK DISORDER
     Dosage: 30 MG, SINGLE (ONCE)
     Route: 030
     Dates: start: 20130129, end: 20130129
  6. TORADOL [Suspect]
     Indication: MIGRAINE
  7. TORADOL [Suspect]
     Indication: HEADACHE
  8. SYNTHROID [Concomitant]
     Indication: AUTOIMMUNE THYROIDITIS
     Dosage: UNK

REACTIONS (3)
  - Urticaria [Recovered/Resolved]
  - Wheezing [Recovered/Resolved]
  - Chest discomfort [Recovered/Resolved]
